FAERS Safety Report 9921390 (Version 2)
Quarter: 2015Q1

REPORT INFORMATION
  Report Type: Report from Study
  Country: US (occurrence: US)
  Receive Date: 20140225
  Receipt Date: 20150203
  Transmission Date: 20150721
  Serious: Yes (Hospitalization)
  Sender: FDA-Public Use
  Company Number: US-SA-2014SA022299

PATIENT
  Age: 63 Year
  Sex: Female
  Weight: 110 kg

DRUGS (1)
  1. CEREZYME [Suspect]
     Active Substance: IMIGLUCERASE
     Indication: GAUCHER^S DISEASE
     Route: 042

REACTIONS (3)
  - Ocular hyperaemia [Unknown]
  - Swelling face [Unknown]
  - Hospitalisation [Unknown]

NARRATIVE: CASE EVENT DATE: 201402
